FAERS Safety Report 23363461 (Version 1)
Quarter: 2024Q1

REPORT INFORMATION
  Report Type: Spontaneous
  Country: CN (occurrence: CN)
  Receive Date: 20240103
  Receipt Date: 20240103
  Transmission Date: 20240409
  Serious: Yes (Hospitalization, Other)
  Sender: FDA-Public Use
  Company Number: CN-PFIZER INC-PV202300207794

PATIENT
  Age: 52 Year
  Sex: Male
  Weight: 52 kg

DRUGS (2)
  1. LINEZOLID [Suspect]
     Active Substance: LINEZOLID
     Indication: Infection
     Dosage: 0.6 G, 2X/DAY
     Route: 048
     Dates: start: 20230809, end: 20231201
  2. LINEZOLID [Suspect]
     Active Substance: LINEZOLID
     Indication: Anti-infective therapy

REACTIONS (4)
  - Vision blurred [Recovering/Resolving]
  - Dyschromatopsia [Recovering/Resolving]
  - Papilloedema [Recovering/Resolving]
  - Optic ischaemic neuropathy [Recovering/Resolving]

NARRATIVE: CASE EVENT DATE: 20231028
